FAERS Safety Report 15761509 (Version 5)
Quarter: 2019Q4

REPORT INFORMATION
  Report Type: Spontaneous
  Country: JP (occurrence: JP)
  Receive Date: 20181226
  Receipt Date: 20191112
  Transmission Date: 20200122
  Serious: Yes (Other)
  Sender: FDA-Public Use
  Company Number: JP-LUNDBECK-DKLU2052822

PATIENT
  Age: 1 Year
  Sex: Male
  Weight: 7 kg

DRUGS (8)
  1. SABRIL [Suspect]
     Active Substance: VIGABATRIN
     Dosage: 750 MG, BID
     Route: 048
     Dates: start: 20180605, end: 20180607
  2. SABRIL [Suspect]
     Active Substance: VIGABATRIN
     Dosage: 600 MG, BID
     Route: 048
     Dates: start: 20180529, end: 20180604
  3. SABRIL [Suspect]
     Active Substance: VIGABATRIN
     Dosage: 600MG, BID
     Route: 048
     Dates: start: 20180612, end: 20180614
  4. SABRIL [Suspect]
     Active Substance: VIGABATRIN
     Dosage: 250MG, BID
     Route: 048
     Dates: start: 20180615, end: 20180619
  5. CORTROSYN Z [Concomitant]
     Active Substance: COSYNTROPIN
     Indication: INFANTILE SPASMS
     Dosage: 0.04-0.2 MG
     Route: 065
     Dates: start: 20180619, end: 20180713
  6. SABRIL [Suspect]
     Active Substance: VIGABATRIN
     Indication: INFANTILE SPASMS
     Dosage: 375 MG, BID
     Route: 048
     Dates: start: 20180524, end: 20180528
  7. SABRIL [Suspect]
     Active Substance: VIGABATRIN
     Dosage: 1125MG, BID
     Route: 048
     Dates: start: 20180608, end: 20180611
  8. CARBOCISTEINE [Concomitant]
     Active Substance: CARBOCYSTEINE
     Indication: OTITIS MEDIA
     Route: 065
     Dates: start: 20180523, end: 20180629

REACTIONS (2)
  - Retinogram abnormal [Not Recovered/Not Resolved]
  - Drug ineffective [Unknown]

NARRATIVE: CASE EVENT DATE: 20181213
